FAERS Safety Report 22292600 (Version 1)
Quarter: 2023Q2

REPORT INFORMATION
  Report Type: Spontaneous
  Country: US (occurrence: US)
  Receive Date: 20230508
  Receipt Date: 20230508
  Transmission Date: 20230722
  Serious: No
  Sender: FDA-Public Use
  Company Number: US-AUROBINDO-AUR-APL-2022-051780

PATIENT
  Sex: Female

DRUGS (1)
  1. DEXTROMETHORPHAN\GUAIFENESIN [Suspect]
     Active Substance: DEXTROMETHORPHAN\GUAIFENESIN
     Indication: Productive cough
     Dosage: 02 PILLS OF MAXIMUM STRENGTH
     Route: 065

REACTIONS (3)
  - Dizziness [Unknown]
  - Extra dose administered [Unknown]
  - Feeling abnormal [Unknown]
